FAERS Safety Report 19593761 (Version 1)
Quarter: 2021Q3

REPORT INFORMATION
  Report Type: Spontaneous
  Country: CA (occurrence: CA)
  Receive Date: 20210722
  Receipt Date: 20210722
  Transmission Date: 20211014
  Serious: Yes (Other)
  Sender: FDA-Public Use
  Company Number: CA-CELGENEUS-CAN-20210703721

PATIENT
  Age: 78 Year
  Sex: Male
  Weight: 79.2 kg

DRUGS (3)
  1. RBC [Concomitant]
     Active Substance: HUMAN RED BLOOD CELL
     Indication: INFUSION
     Dosage: 2 UNITS
     Route: 065
     Dates: start: 20210709
  2. REBLOZYL [Suspect]
     Active Substance: LUSPATERCEPT-AAMT
     Indication: MYELODYSPLASTIC SYNDROME
     Dosage: 1 MILLIGRAM/KILOGRAM?75 MG VIAL?25 MG VIAL
     Route: 058
     Dates: start: 20210623
  3. PLATELETS [Concomitant]
     Active Substance: HUMAN PLATELET, ALLOGENIC
     Indication: INFUSION
     Dosage: 2 UNITS
     Route: 065
     Dates: start: 20210709

REACTIONS (1)
  - Carpal tunnel syndrome [Recovering/Resolving]

NARRATIVE: CASE EVENT DATE: 20210707
